FAERS Safety Report 14419232 (Version 1)
Quarter: 2018Q1

REPORT INFORMATION
  Report Type: Spontaneous
  Country: CN (occurrence: CN)
  Receive Date: 20180122
  Receipt Date: 20180122
  Transmission Date: 20180509
  Serious: Yes (Death, Other)
  Sender: FDA-Public Use
  Company Number: CN-IMPAX LABORATORIES, INC-2018-IPXL-00155

PATIENT
  Age: 83 Year
  Sex: Male

DRUGS (15)
  1. GLICLAZIDE [Concomitant]
     Active Substance: GLICLAZIDE
     Indication: TYPE 2 DIABETES MELLITUS
     Dosage: 30 MG, QD
     Route: 048
  2. ACARBOSE. [Concomitant]
     Active Substance: ACARBOSE
     Indication: PRODUCT USED FOR UNKNOWN INDICATION
     Dosage: 50 MG, TID
     Route: 048
  3. DOXYCYCLINE HYCLATE DELAYED RELEASE [Suspect]
     Active Substance: DOXYCYCLINE HYCLATE
     Indication: PNEUMONIA
     Dosage: 0.2 G, QD
     Route: 041
     Dates: start: 2016, end: 2016
  4. CLOPIDOGRAN [Concomitant]
     Indication: PRODUCT USED FOR UNKNOWN INDICATION
     Dosage: 75 MG, QD
     Route: 048
  5. AMBROXOL HYDROCHLORIDE [Concomitant]
     Active Substance: AMBROXOL HYDROCHLORIDE
     Dosage: 60 MG, EVERY 8HR
     Route: 042
  6. ESOMEPRAZOL                        /01479301/ [Concomitant]
     Active Substance: ESOMEPRAZOLE
     Indication: PRODUCT USED FOR UNKNOWN INDICATION
     Dosage: 20 MG, QD
     Route: 048
     Dates: start: 2016, end: 2016
  7. INSULIN [Concomitant]
     Active Substance: INSULIN NOS
     Indication: TYPE 2 DIABETES MELLITUS
     Dosage: 6 IU, QD
     Route: 041
     Dates: start: 2016, end: 2016
  8. BIFIDOBACTERIUM ADOLESCENTIS [Concomitant]
     Indication: PROBIOTIC THERAPY
     Dosage: 0.7 G, THREE TIME DAILY
     Route: 048
     Dates: start: 2016, end: 2016
  9. AMLODIPINE BESYLATE. [Concomitant]
     Active Substance: AMLODIPINE BESYLATE
     Indication: PRODUCT USED FOR UNKNOWN INDICATION
     Dosage: 5 MG, QD
     Route: 048
  10. GLICLAZIDE [Concomitant]
     Active Substance: GLICLAZIDE
     Dosage: 60 MG, QD
     Route: 048
  11. AMBROXOL HYDROCHLORIDE [Concomitant]
     Active Substance: AMBROXOL HYDROCHLORIDE
     Indication: PRODUCT USED FOR UNKNOWN INDICATION
     Dosage: 30 MG, TID
     Route: 048
  12. INSULIN [Concomitant]
     Active Substance: INSULIN NOS
     Dosage: 6 IU, QD
     Route: 050
     Dates: start: 2016, end: 2016
  13. CEFOPERAZONE;TAZOBACTAM [Interacting]
     Active Substance: CEFOPERAZONE\TAZOBACTAM SODIUM
     Indication: PNEUMONIA
     Dosage: 2 G, EVERY 8HR
     Route: 041
     Dates: start: 2016, end: 2016
  14. ETIMICIN SULFATE [Concomitant]
     Active Substance: ETIMICIN SULFATE
     Indication: PNEUMONIA
     Dosage: 0.2 G, QD
     Route: 041
     Dates: start: 2016, end: 2016
  15. INSULIN [Concomitant]
     Active Substance: INSULIN NOS
     Dosage: 8 IU, UNK
     Route: 065
     Dates: start: 2016, end: 2016

REACTIONS (7)
  - Prothrombin time ratio increased [Recovered/Resolved]
  - Prothrombin time prolonged [Recovered/Resolved]
  - Product use in unapproved indication [Unknown]
  - Pneumonia pseudomonal [Fatal]
  - Renal impairment [Unknown]
  - Drug interaction [Recovered/Resolved]
  - Activated partial thromboplastin time prolonged [Recovered/Resolved]

NARRATIVE: CASE EVENT DATE: 2016
